FAERS Safety Report 5165620-8 (Version None)
Quarter: 2006Q4

REPORT INFORMATION
  Report Type: 
  Country: None (occurrence: None)
  Receive Date: 20061124
  Receipt Date: 20061110
  Transmission Date: 20070319
  Serious: Yes (Life-Threatening, Hospitalization)
  Sender: FDA-Public Use
  Company Number: 149822ISR

PATIENT
  Sex: Male

DRUGS (3)
  1. DICLOFENAC SODIUM [Suspect]
     Indication: ANALGESIC EFFECT
     Dosage: 150 MG (50 MG, 3 IN 1 D)
     Route: 048
     Dates: start: 20061019, end: 20061024
  2. WARFARIN SODIUM [Suspect]
     Indication: DEEP VEIN THROMBOSIS
     Dosage: 5 MG
     Route: 048
     Dates: start: 20061020, end: 20061024
  3. ACETAMINOPHEN [Suspect]
     Dosage: 4 GRAM (1 GRAM, 4 IN 1 D)
     Route: 048

REACTIONS (2)
  - DRUG INTERACTION [None]
  - INTERNATIONAL NORMALISED RATIO INCREASED [None]
